FAERS Safety Report 7548718-6 (Version None)
Quarter: 2011Q2

REPORT INFORMATION
  Report Type: 
  Country: None (occurrence: None)
  Receive Date: 20110608
  Receipt Date: 20110602
  Transmission Date: 20111010
  Serious: Yes (Death, Hospitalization, Other)
  Sender: FDA-Public Use
  Company Number: 2010US002715

PATIENT
  Age: 29 Year
  Sex: Female
  Weight: 45 kg

DRUGS (4)
  1. NASAL SPRAY (NASAL SPRAY) [Concomitant]
  2. PROGRAF [Suspect]
     Indication: LIVER TRANSPLANT
     Dosage: 3 MG, BID, ORAL, 1 MG, UID/QD, ORAL
     Route: 048
     Dates: start: 20091201
  3. PROGRAF [Suspect]
     Indication: LIVER TRANSPLANT
     Dosage: 3 MG, BID, ORAL, 1 MG, UID/QD, ORAL
     Route: 048
     Dates: start: 20000201
  4. PREDNISONE [Concomitant]

REACTIONS (5)
  - HAEMATEMESIS [None]
  - PNEUMONIA [None]
  - FUNGAL INFECTION [None]
  - HEPATIC FAILURE [None]
  - BACTERIAL INFECTION [None]
